FAERS Safety Report 21301449 (Version 1)
Quarter: 2022Q3

REPORT INFORMATION
  Report Type: Spontaneous
  Country: US (occurrence: None)
  Receive Date: 20220906
  Receipt Date: 20220906
  Transmission Date: 20221027
  Serious: Yes (Other)
  Sender: FDA-Public Use
  Company Number: None

PATIENT
  Age: 69 Year
  Sex: Male
  Weight: 82.55 kg

DRUGS (1)
  1. KEYTRUDA [Suspect]
     Active Substance: PEMBROLIZUMAB
     Indication: Hepatic cancer
     Dosage: 200MG EVERY 3 WEEKS IV
     Route: 042
     Dates: start: 20220525

REACTIONS (2)
  - Chest pain [None]
  - Pruritus [None]

NARRATIVE: CASE EVENT DATE: 20220906
